FAERS Safety Report 7699112-9 (Version None)
Quarter: 2011Q3

REPORT INFORMATION
  Report Type: 
  Country: None (occurrence: None)
  Receive Date: 20110819
  Receipt Date: 20110811
  Transmission Date: 20111222
  Serious: Yes (Other)
  Sender: FDA-Public Use
  Company Number: US-ALLERGAN-1101174US

PATIENT
  Age: 56 Year
  Sex: Female

DRUGS (1)
  1. RESTASIS [Suspect]
     Indication: DRY EYE
     Dosage: 2 GTT, BID
     Route: 047
     Dates: start: 20071024

REACTIONS (4)
  - CORNEAL EROSION [None]
  - SUPERFICIAL INJURY OF EYE [None]
  - ULCERATIVE KERATITIS [None]
  - CORNEAL SCAR [None]
